FAERS Safety Report 5025210-4 (Version None)
Quarter: 2006Q2

REPORT INFORMATION
  Report Type: 
  Country: None (occurrence: None)
  Receive Date: 20060609
  Receipt Date: 20060609
  Transmission Date: 20061013
  Serious: Yes (Life-Threatening, Hospitalization, Other)
  Sender: FDA-Public Use
  Company Number: None

PATIENT
  Age: 67 Year
  Sex: Female
  Weight: 60.3 kg

DRUGS (9)
  1. PREVACID [Suspect]
     Indication: GASTROOESOPHAGEAL REFLUX DISEASE
     Dates: start: 20060519, end: 20060519
  2. SPIRIVA [Concomitant]
  3. FORADIL [Concomitant]
  4. DYRENIUM [Concomitant]
  5. POLARIS [Concomitant]
  6. PREVACID [Concomitant]
  7. LIQUID ANTACID [Concomitant]
  8. PREDNISONE [Concomitant]
  9. OXYGEN [Concomitant]

REACTIONS (6)
  - COMPLEMENT FACTOR C4 DECREASED [None]
  - KIDNEY SMALL [None]
  - NEPHRITIS INTERSTITIAL [None]
  - RASH [None]
  - RED BLOOD CELLS URINE POSITIVE [None]
  - RENAL FAILURE ACUTE [None]
